FAERS Safety Report 25966917 (Version 1)
Quarter: 2025Q4

REPORT INFORMATION
  Report Type: Spontaneous
  Country: US (occurrence: None)
  Receive Date: 20251028
  Receipt Date: 20251028
  Transmission Date: 20260117
  Serious: No
  Sender: ENCUBE ETHICALS PVT. LTD.
  Company Number: US-Encube-002532

PATIENT
  Age: 19 Year
  Sex: Female

DRUGS (1)
  1. CLINDAMYCIN PHOSPHATE [Suspect]
     Active Substance: CLINDAMYCIN PHOSPHATE
     Indication: Acne
     Dosage: TWICE A DAY FOR 3 MONTHS
     Dates: start: 20250920, end: 20250921

REACTIONS (6)
  - Urticaria [Unknown]
  - Application site rash [Unknown]
  - Skin lesion [Not Recovered/Not Resolved]
  - Application site dryness [Unknown]
  - Application site scar [Unknown]
  - Skin burning sensation [Unknown]

NARRATIVE: CASE EVENT DATE: 20250921
